FAERS Safety Report 6574653-6 (Version None)
Quarter: 2010Q1

REPORT INFORMATION
  Report Type: 
  Country: None (occurrence: None)
  Receive Date: 20100201
  Receipt Date: 20100122
  Transmission Date: 20100710
  Serious: Yes (Hospitalization, Other)
  Sender: FDA-Public Use
  Company Number: 2010SP004745

PATIENT
  Age: 26 Year
  Sex: Female
  Weight: 58 kg

DRUGS (1)
  1. NUVARING [Suspect]
     Indication: CONTRACEPTION
     Dates: start: 20080601

REACTIONS (3)
  - DEEP VEIN THROMBOSIS [None]
  - GROIN ABSCESS [None]
  - THROMBOSIS [None]
